FAERS Safety Report 19469713 (Version 1)
Quarter: 2021Q2

REPORT INFORMATION
  Report Type: Report from Study
  Country: IT (occurrence: IT)
  Receive Date: 20210628
  Receipt Date: 20210628
  Transmission Date: 20210717
  Serious: Yes (Other)
  Sender: FDA-Public Use
  Company Number: IT-GLAXOSMITHKLINE-ITCH2021039717

PATIENT
  Age: 34 Year
  Sex: Male

DRUGS (10)
  1. PANTORC [Concomitant]
     Active Substance: PANTOPRAZOLE SODIUM
     Indication: PRODUCT USED FOR UNKNOWN INDICATION
     Dosage: UNK
     Route: 065
  2. METADOXIL [Concomitant]
     Active Substance: METADOXINE
     Indication: PRODUCT USED FOR UNKNOWN INDICATION
     Dosage: UNK
     Route: 065
  3. IBUPROFEN. [Suspect]
     Active Substance: IBUPROFEN
     Indication: PAIN
     Dosage: 800 MG, (TOTAL)
     Route: 048
     Dates: start: 20210423, end: 20210523
  4. AUGMENTIN [Suspect]
     Active Substance: AMOXICILLIN\CLAVULANATE POTASSIUM
     Indication: INFECTION
     Dosage: 7 DF, (TOTAL)
     Route: 048
     Dates: start: 20210523, end: 20210523
  5. GLADIO [Suspect]
     Active Substance: ACECLOFENAC
     Indication: PAIN
     Dosage: 200 MG, (TOTAL)
     Route: 048
     Dates: start: 20210523, end: 20210523
  6. OKI [Suspect]
     Active Substance: KETOPROFEN LYSINE
     Indication: PAIN
     Dosage: 1 DF, (TOTAL)
     Route: 048
     Dates: start: 20210523, end: 20210523
  7. NIMESULIDE [Suspect]
     Active Substance: NIMESULIDE
     Indication: PAIN
     Dosage: 200 MG, (TOTAL)
     Route: 048
     Dates: start: 20210523, end: 20210523
  8. SERENSE (MEDICATION UNKNOWN) [Concomitant]
     Indication: PRODUCT USED FOR UNKNOWN INDICATION
     Dosage: UNK
     Route: 065
  9. MIDAZOLAM. [Concomitant]
     Active Substance: MIDAZOLAM
     Indication: PRODUCT USED FOR UNKNOWN INDICATION
     Dosage: UNK
     Route: 042
  10. CHARCOAL [Concomitant]
     Active Substance: ACTIVATED CHARCOAL
     Indication: PRODUCT USED FOR UNKNOWN INDICATION
     Dosage: UNK
     Route: 065

REACTIONS (3)
  - Agitation [Recovering/Resolving]
  - Drug abuse [Recovering/Resolving]
  - Headache [Recovering/Resolving]

NARRATIVE: CASE EVENT DATE: 20210523
